FAERS Safety Report 6157467-0 (Version None)
Quarter: 2009Q2

REPORT INFORMATION
  Report Type: 
  Country: None (occurrence: None)
  Receive Date: 20090416
  Receipt Date: 20090413
  Transmission Date: 20091009
  Serious: Yes (Death, Hospitalization, Other)
  Sender: FDA-Public Use
  Company Number: PHHY2009BR13892

PATIENT
  Sex: Male
  Weight: 90 kg

DRUGS (3)
  1. FORASEQ [Suspect]
     Indication: DYSPNOEA
     Dosage: UNK
     Dates: end: 20090409
  2. DIOVAN [Suspect]
     Indication: HYPERTENSION
     Dosage: UNK
     Route: 048
     Dates: end: 20080101
  3. FUROSEMIDE [Concomitant]
     Indication: HYPERTENSION
     Dosage: 40 MG, BID

REACTIONS (5)
  - ABDOMINAL PAIN [None]
  - BIOPSY [None]
  - JAUNDICE [None]
  - PANCREATIC CARCINOMA [None]
  - URINARY TRACT OBSTRUCTION [None]
